FAERS Safety Report 21329002 (Version 1)
Quarter: 2022Q3

REPORT INFORMATION
  Report Type: Spontaneous
  Country: US (occurrence: None)
  Receive Date: 20220912
  Receipt Date: 20220912
  Transmission Date: 20221027
  Serious: Yes (Other)
  Sender: FDA-Public Use
  Company Number: None

PATIENT
  Age: 69 Year
  Sex: 0
  Weight: 106.2 kg

DRUGS (16)
  1. REVLIMID [Suspect]
     Active Substance: LENALIDOMIDE
     Indication: Plasma cell myeloma
     Dosage: FREQUENCY : DAILY;?
     Route: 048
     Dates: start: 20220407, end: 20220912
  2. acyclovir [Concomitant]
  3. AMLODIPINE [Concomitant]
  4. DEXAMETHASONE [Concomitant]
  5. FAMOTIDINE [Concomitant]
  6. FENOFIBRATE [Concomitant]
  7. GLIPIZIDE [Concomitant]
  8. HYDROCODONE [Concomitant]
  9. JARDIANCE [Concomitant]
  10. METFORMIN [Concomitant]
  11. METOPROLOL TARTRATE [Concomitant]
     Active Substance: METOPROLOL TARTRATE
  12. Nexium [Concomitant]
  13. Novolog U-100 Insulin aspart [Concomitant]
  14. OXYCODONE [Concomitant]
     Active Substance: OXYCODONE
  15. TERBUTALINE [Concomitant]
  16. VASCEPA [Concomitant]

REACTIONS (1)
  - Rash [None]

NARRATIVE: CASE EVENT DATE: 20220907
